FAERS Safety Report 6974425-4 (Version None)
Quarter: 2010Q3

REPORT INFORMATION
  Report Type: 
  Country: None (occurrence: None)
  Receive Date: 20100909
  Receipt Date: 20080701
  Transmission Date: 20110219
  Serious: No
  Sender: FDA-Public Use
  Company Number: US-WYE-H04155508

PATIENT
  Age: 52 Year
  Sex: Female

DRUGS (1)
  1. PANTOPRAZOLE [Suspect]
     Indication: GASTROOESOPHAGEAL REFLUX DISEASE
     Route: 048
     Dates: start: 20080501

REACTIONS (3)
  - DRUG EFFECT DECREASED [None]
  - DYSGEUSIA [None]
  - SENSATION OF FOREIGN BODY [None]
